FAERS Safety Report 8256529-1 (Version None)
Quarter: 2012Q2

REPORT INFORMATION
  Report Type: 
  Country: None (occurrence: None)
  Receive Date: 20120403
  Receipt Date: 20120322
  Transmission Date: 20120825
  Serious: Yes (Hospitalization)
  Sender: FDA-Public Use
  Company Number: FR-ELI_LILLY_AND_COMPANY-FR201203006813

PATIENT
  Sex: Male
  Weight: 75 kg

DRUGS (2)
  1. PEMETREXED [Suspect]
     Indication: NON-SMALL CELL LUNG CANCER
     Dosage: 965 MG, 21 DAYS PER CYCLE
     Route: 042
     Dates: start: 20110120
  2. CISPLATIN [Suspect]
     Indication: NON-SMALL CELL LUNG CANCER
     Dosage: 145 MG, 21 DAYS PER CYCLE
     Route: 042
     Dates: start: 20120120

REACTIONS (1)
  - GENERAL PHYSICAL HEALTH DETERIORATION [None]
